FAERS Safety Report 11197190 (Version 1)
Quarter: 2015Q2

REPORT INFORMATION
  Report Type: Spontaneous
  Country: US (occurrence: US)
  Receive Date: 20150617
  Receipt Date: 20150617
  Transmission Date: 20150821
  Serious: No
  Sender: FDA-Public Use
  Company Number: US-SA-2014SA096211

PATIENT
  Age: 7 Year
  Sex: Male
  Weight: 21.77 kg

DRUGS (12)
  1. NORMAL SALINE [Concomitant]
     Active Substance: SODIUM CHLORIDE
  2. EPIPEN [Concomitant]
     Active Substance: EPINEPHRINE
  3. AUGMENTIN [Concomitant]
     Active Substance: AMOXICILLIN\CLAVULANATE POTASSIUM
  4. CEFDINIR. [Concomitant]
     Active Substance: CEFDINIR
  5. ZYRTEC [Concomitant]
     Active Substance: CETIRIZINE HYDROCHLORIDE
  6. CEREZYME [Suspect]
     Active Substance: IMIGLUCERASE
     Indication: GAUCHER^S DISEASE
     Dosage: DOSE:25 UNIT(S)/KILOGRAM BODYWEIGHT
     Route: 042
     Dates: start: 20100809
  7. HEPARIN [Concomitant]
     Active Substance: HEPARIN SODIUM
  8. SODIUM CHLORIDE. [Concomitant]
     Active Substance: SODIUM CHLORIDE
  9. SINGULAIR [Concomitant]
     Active Substance: MONTELUKAST SODIUM
  10. AMOXICILLIN. [Concomitant]
     Active Substance: AMOXICILLIN
  11. WATER FOR INJECTION [Concomitant]
     Active Substance: WATER
  12. LIDOCAINE. [Concomitant]
     Active Substance: LIDOCAINE

REACTIONS (1)
  - Sinusitis [Unknown]
